FAERS Safety Report 13725860 (Version 3)
Quarter: 2018Q2

REPORT INFORMATION
  Report Type: Spontaneous
  Country: DE (occurrence: DE)
  Receive Date: 20170706
  Receipt Date: 20180425
  Transmission Date: 20180711
  Serious: Yes (Death)
  Sender: FDA-Public Use
  Company Number: PHHY2017DE093965

PATIENT
  Age: 26 Year
  Sex: Female

DRUGS (1)
  1. TIZANIDINE. [Suspect]
     Active Substance: TIZANIDINE
     Indication: AUTOMATIC BLADDER
     Dosage: 2 MG, (1 DF) QD
     Route: 048
     Dates: start: 201703

REACTIONS (2)
  - Hepatic necrosis [Fatal]
  - Acute hepatic failure [Fatal]
